FAERS Safety Report 9206513 (Version 2)
Quarter: 2013Q2

REPORT INFORMATION
  Report Type: Report from Study
  Country: DE (occurrence: DE)
  Receive Date: 20130403
  Receipt Date: 20130502
  Transmission Date: 20140414
  Serious: Yes (Hospitalization)
  Sender: FDA-Public Use
  Company Number: DE-UCBSA-081898

PATIENT
  Sex: Male

DRUGS (8)
  1. VIMPAT [Suspect]
     Indication: EPILEPSY
     Dosage: DOSE: 50 MG/DAY
     Dates: start: 20100301, end: 2010
  2. VIMPAT [Suspect]
     Indication: EPILEPSY
     Dosage: DOSE: 200 MG/DAY
     Dates: start: 2010, end: 2010
  3. VIMPAT [Suspect]
     Indication: EPILEPSY
     Dosage: DOSE: 300 MG/DAY
     Dates: start: 2010
  4. VIMPAT [Suspect]
     Indication: EPILEPSY
     Dosage: DOSE: 400 MG/DAY
  5. LAMOTRIGINE [Concomitant]
     Indication: EPILEPSY
     Dosage: DOSE: 650 MG/DAY
  6. LAMOTRIGINE [Concomitant]
     Indication: EPILEPSY
     Dosage: DOSE: 500 MG/DAY
     Dates: start: 2010, end: 2010
  7. LAMOTRIGINE [Concomitant]
     Indication: EPILEPSY
     Dosage: DOSE: 400 MG/DAY
     Dates: start: 2010
  8. LAMOTRIGINE [Concomitant]
     Indication: EPILEPSY
     Dosage: DOSE: 300 MG/DAY

REACTIONS (1)
  - Status epilepticus [Unknown]
